FAERS Safety Report 6246744-0 (Version None)
Quarter: 2009Q2

REPORT INFORMATION
  Report Type: 
  Country: None (occurrence: None)
  Receive Date: 20090626
  Receipt Date: 20090616
  Transmission Date: 20091009
  Serious: Yes (Other)
  Sender: FDA-Public Use
  Company Number: KR-PFIZER INC-2009228933

PATIENT
  Age: 58 Year

DRUGS (8)
  1. DOCETAXEL [Suspect]
     Indication: BREAST CANCER
     Dosage: UNK
     Route: 042
     Dates: start: 20080516
  2. DOCETAXEL [Suspect]
     Dosage: 60 MG, UNK
     Route: 042
     Dates: start: 20090108
  3. SUNITINIB MALATE [Suspect]
     Indication: BREAST CANCER
     Dosage: UNK
     Route: 048
     Dates: start: 20080516
  4. SUNITINIB MALATE [Suspect]
     Dosage: 37.5 MG, 1X/DAY
     Route: 048
     Dates: start: 20090108
  5. CEFPODOXIME PROXETIL [Concomitant]
     Dosage: 100 MG, 2X/DAY
     Dates: start: 20090212, end: 20090417
  6. PIROXICAM [Concomitant]
     Dosage: 10 MG, 2X/DAY
     Dates: start: 20081231, end: 20090417
  7. BENZETHONIUM CHLORIDE [Concomitant]
     Dosage: 100 ML, AS NEEDED
     Dates: start: 20081231, end: 20090420
  8. MYPOL [Concomitant]
     Dosage: 2 DF, 3X/DAY
     Dates: start: 20090402, end: 20090423

REACTIONS (2)
  - OSTEOMYELITIS [None]
  - SINUSITIS [None]
